FAERS Safety Report 20351400 (Version 1)
Quarter: 2022Q1

REPORT INFORMATION
  Report Type: Report from Study
  Country: US (occurrence: US)
  Receive Date: 20220119
  Receipt Date: 20220119
  Transmission Date: 20220424
  Serious: No
  Sender: FDA-Public Use
  Company Number: US-NOVARTISTESTPH-NVSC2022US010062

PATIENT
  Sex: Female

DRUGS (1)
  1. KISQALI [Suspect]
     Active Substance: RIBOCICLIB
     Indication: Breast cancer female
     Dosage: 200 MG, TID (BY MOUTH AT SAME TIME DAILY PREFERABLY IN THE AM WITH OR WITHOUT FOOD ON DAYS 1 TO 21 O
     Route: 048

REACTIONS (1)
  - Peripheral swelling [Unknown]
